FAERS Safety Report 25318055 (Version 2)
Quarter: 2025Q3

REPORT INFORMATION
  Report Type: Spontaneous
  Country: US (occurrence: US)
  Receive Date: 20250515
  Receipt Date: 20250809
  Transmission Date: 20251020
  Serious: Yes (Other)
  Sender: ALEXION PHARMACEUTICALS
  Company Number: US-AstraZeneca-CH-00869782A

PATIENT

DRUGS (1)
  1. NEXIUM 24HR [Suspect]
     Active Substance: ESOMEPRAZOLE MAGNESIUM
     Indication: Gastrooesophageal reflux disease
     Route: 065

REACTIONS (4)
  - Neuropathy peripheral [Unknown]
  - Burning sensation [Recovered/Resolved]
  - Feeling abnormal [Unknown]
  - Incorrect dose administered [Unknown]
